FAERS Safety Report 13675000 (Version 2)
Quarter: 2017Q2

REPORT INFORMATION
  Report Type: Spontaneous
  Country: US (occurrence: US)
  Receive Date: 20170621
  Receipt Date: 20170622
  Transmission Date: 20170830
  Serious: No
  Sender: FDA-Public Use
  Company Number: US-PFIZER INC-2017268745

PATIENT
  Age: 72 Year
  Sex: Male
  Weight: 70.31 kg

DRUGS (2)
  1. GABAPENTIN. [Suspect]
     Active Substance: GABAPENTIN
     Indication: NEURALGIA
     Dosage: UNK
  2. GABAPENTIN. [Suspect]
     Active Substance: GABAPENTIN
     Dosage: 3X/DAY (ONE 400MG CAPSULE IN THE MORNING AND IN THE AFTERNOON AND TWO 400MG CAPSULES AT NIGHT)
     Route: 048
     Dates: end: 201706

REACTIONS (3)
  - Drug ineffective for unapproved indication [Unknown]
  - Weight increased [Unknown]
  - Rash pruritic [Not Recovered/Not Resolved]

NARRATIVE: CASE EVENT DATE: 201706
